FAERS Safety Report 19883578 (Version 2)
Quarter: 2021Q3

REPORT INFORMATION
  Report Type: Spontaneous
  Country: US (occurrence: US)
  Receive Date: 20210927
  Receipt Date: 20210928
  Transmission Date: 20211014
  Serious: No
  Sender: FDA-Public Use
  Company Number: US-BRISTOL-MYERS SQUIBB COMPANY-BMS-2021-097612

PATIENT
  Age: 64 Year
  Sex: Male
  Weight: 70.31 kg

DRUGS (1)
  1. KENALOG?40 [Suspect]
     Active Substance: TRIAMCINOLONE ACETONIDE
     Indication: NECK PAIN
     Dosage: 80 MILLIGRAM
     Route: 008
     Dates: start: 20201230

REACTIONS (6)
  - Movement disorder [Unknown]
  - Erythema [Unknown]
  - Insomnia [Unknown]
  - Pain [Unknown]
  - Off label use [Unknown]
  - Pain in extremity [Unknown]

NARRATIVE: CASE EVENT DATE: 20201230
